FAERS Safety Report 23379932 (Version 1)
Quarter: 2024Q1

REPORT INFORMATION
  Report Type: Spontaneous
  Country: US (occurrence: US)
  Receive Date: 20240109
  Receipt Date: 20240109
  Transmission Date: 20240409
  Serious: Yes (Death, Hospitalization)
  Sender: FDA-Public Use
  Company Number: US-STRIDES ARCOLAB LIMITED-2024SP000106

PATIENT
  Age: 46 Year
  Sex: Female

DRUGS (1)
  1. METHOTREXATE [Suspect]
     Active Substance: METHOTREXATE
     Indication: Systemic lupus erythematosus
     Dosage: UNK (LOW DOSE)
     Route: 065

REACTIONS (6)
  - Pancytopenia [Fatal]
  - Respiratory failure [Fatal]
  - Pulmonary alveolar haemorrhage [Fatal]
  - Myelosuppression [Fatal]
  - Toxicity to various agents [Fatal]
  - Off label use [Unknown]
